FAERS Safety Report 4607206-7 (Version None)
Quarter: 2005Q1

REPORT INFORMATION
  Report Type: 
  Country: None (occurrence: None)
  Receive Date: 20050309
  Receipt Date: 20050221
  Transmission Date: 20050727
  Serious: Yes (Other)
  Sender: FDA-Public Use
  Company Number: USA041286435

PATIENT
  Age: 56 Year
  Sex: Male

DRUGS (7)
  1. CIALIS [Suspect]
     Indication: ERECTILE DYSFUNCTION
     Dosage: 20 MG
     Dates: start: 20040812
  2. AVANDIA [Concomitant]
  3. PROCARDIA (NIFEDIPINE PA) [Concomitant]
  4. VOLTAREN (DICLOFENAC DIETHYLAMINE) [Concomitant]
  5. PAXIL [Concomitant]
  6. ZOCOR (SIMVASTATIN RATIOPHARM) [Concomitant]
  7. DESYREL (TRAZOSONE HYDROCHLORIDE) [Concomitant]

REACTIONS (1)
  - RETINAL TEAR [None]
